FAERS Safety Report 5612854-1 (Version None)
Quarter: 2008Q1

REPORT INFORMATION
  Report Type: 
  Country: None (occurrence: None)
  Receive Date: 20080204
  Receipt Date: 20080123
  Transmission Date: 20080703
  Serious: No
  Sender: FDA-Public Use
  Company Number: DE-PFIZER INC-2007103698

PATIENT
  Sex: Female

DRUGS (1)
  1. DETRUSITOL [Suspect]
     Indication: URGE INCONTINENCE

REACTIONS (1)
  - NO ADVERSE EVENT [None]
